FAERS Safety Report 11819635 (Version 1)
Quarter: 2015Q4

REPORT INFORMATION
  Report Type: Spontaneous
  Country: US (occurrence: None)
  Receive Date: 20151209
  Receipt Date: 20151209
  Transmission Date: 20160305
  Serious: Yes (Hospitalization)
  Sender: FDA-Public Use
  Company Number: None

PATIENT
  Age: 85 Year
  Sex: Female
  Weight: 53.5 kg

DRUGS (17)
  1. AMIODARONE [Concomitant]
     Active Substance: AMIODARONE
  2. GUAFENESIN [Concomitant]
     Active Substance: GUAIFENESIN
  3. ZOSYN [Concomitant]
     Active Substance: PIPERACILLIN SODIUM\TAZOBACTAM SODIUM
  4. OXYCODONE [Suspect]
     Active Substance: OXYCODONE
     Indication: PAIN
     Dosage: 2.5MG Q4HRS PRN PO?RECENT
     Route: 048
  5. FENTANYL. [Suspect]
     Active Substance: FENTANYL
     Indication: PAIN
     Dosage: RECENT DURING SURGERY
     Route: 042
  6. FENTANYL TRANSDERMAL SYSTEM [Suspect]
     Active Substance: FENTANYL
     Dosage: 12MCG  Q72HRS TD
     Route: 062
  7. PROTONIX [Concomitant]
     Active Substance: PANTOPRAZOLE SODIUM
  8. MARCAINE [Concomitant]
     Active Substance: BUPIVACAINE HYDROCHLORIDE
  9. COLLAGENASE SANTYL [Concomitant]
     Active Substance: COLLAGENASE CLOSTRIDIUM HISTOLYTICUM
  10. DUONEB [Concomitant]
     Active Substance: ALBUTEROL SULFATE\IPRATROPIUM BROMIDE
  11. VANC [Concomitant]
  12. TOPROL XL [Concomitant]
     Active Substance: METOPROLOL SUCCINATE
  13. MIDAZOLAM [Suspect]
     Active Substance: MIDAZOLAM\MIDAZOLAM HYDROCHLORIDE
  14. BACITRACIN. [Concomitant]
     Active Substance: BACITRACIN
  15. EPHEDRINE. [Concomitant]
     Active Substance: EPHEDRINE
  16. ZOFRAN [Concomitant]
     Active Substance: ONDANSETRON HYDROCHLORIDE
  17. ASPIRIN. [Concomitant]
     Active Substance: ASPIRIN

REACTIONS (2)
  - Hypopnoea [None]
  - Unresponsive to stimuli [None]

NARRATIVE: CASE EVENT DATE: 20150402
